FAERS Safety Report 8515701-3 (Version None)
Quarter: 2012Q3

REPORT INFORMATION
  Report Type: 
  Country: None (occurrence: None)
  Receive Date: 20120717
  Receipt Date: 20120712
  Transmission Date: 20120928
  Serious: Yes (Life-Threatening, Hospitalization)
  Sender: FDA-Public Use
  Company Number: PHHY2012TR054254

PATIENT
  Age: 37 Year
  Sex: Male

DRUGS (1)
  1. DIGOXIN [Suspect]
     Dosage: 03 BOXES OF DIGOXIN (37.5 MG)

REACTIONS (27)
  - SUICIDE ATTEMPT [None]
  - MUSCLE CONTRACTIONS INVOLUNTARY [None]
  - BRADYCARDIA [None]
  - TOXICITY TO VARIOUS AGENTS [None]
  - BLOOD CREATINE PHOSPHOKINASE INCREASED [None]
  - OVERDOSE [None]
  - VENTRICULAR TACHYCARDIA [None]
  - CARDIAC ARREST [None]
  - C-REACTIVE PROTEIN INCREASED [None]
  - NODAL RHYTHM [None]
  - RESPIRATORY ACIDOSIS [None]
  - GENERAL PHYSICAL HEALTH DETERIORATION [None]
  - RHONCHI [None]
  - VENTRICULAR FIBRILLATION [None]
  - VENTRICULAR EXTRASYSTOLES [None]
  - COMA SCALE ABNORMAL [None]
  - BLOOD POTASSIUM INCREASED [None]
  - BLOOD CREATINE PHOSPHOKINASE MB INCREASED [None]
  - ASPARTATE AMINOTRANSFERASE INCREASED [None]
  - ALANINE AMINOTRANSFERASE INCREASED [None]
  - HYPOTENSION [None]
  - ATRIAL TACHYCARDIA [None]
  - WHITE BLOOD CELL COUNT INCREASED [None]
  - VENTRICULAR ARRHYTHMIA [None]
  - ACCELERATED IDIOVENTRICULAR RHYTHM [None]
  - DRUG LEVEL ABOVE THERAPEUTIC [None]
  - INCREASED BRONCHIAL SECRETION [None]
